FAERS Safety Report 7263833-2 (Version None)
Quarter: 2011Q1

REPORT INFORMATION
  Report Type: 
  Country: None (occurrence: None)
  Receive Date: 20110130
  Receipt Date: 20101202
  Transmission Date: 20110831
  Serious: No
  Sender: FDA-Public Use
  Company Number: US-ABBOTT-10P-163-0689949-00

PATIENT
  Sex: Female

DRUGS (3)
  1. HUMIRA [Suspect]
     Route: 058
  2. PRENATAL VITAMINS [Concomitant]
     Indication: PREGNANCY
  3. HUMIRA [Suspect]
     Indication: COLITIS ULCERATIVE
     Dosage: WAS OFF MEDICATION DUE TO PREGNANCY.
     Route: 058
     Dates: start: 20080101

REACTIONS (1)
  - COLITIS ULCERATIVE [None]
